FAERS Safety Report 6627125-4 (Version None)
Quarter: 2010Q1

REPORT INFORMATION
  Report Type: 
  Country: None (occurrence: None)
  Receive Date: 20100311
  Receipt Date: 20090923
  Transmission Date: 20100710
  Serious: No
  Sender: FDA-Public Use
  Company Number: A0808660A

PATIENT
  Age: 53 Year
  Sex: Female

DRUGS (1)
  1. NICORETTE [Suspect]
     Dates: start: 20090923, end: 20090923

REACTIONS (2)
  - DYSPEPSIA [None]
  - EXPIRED DRUG ADMINISTERED [None]
